FAERS Safety Report 8326144-X (Version None)
Quarter: 2012Q2

REPORT INFORMATION
  Report Type: 
  Country: None (occurrence: None)
  Receive Date: 20120501
  Receipt Date: 20120423
  Transmission Date: 20120825
  Serious: Yes (Other)
  Sender: FDA-Public Use
  Company Number: US-ASTRAZENECA-2011SE03536

PATIENT
  Age: 55 Year
  Sex: Female

DRUGS (25)
  1. METOPROLOL TARTRATE [Suspect]
     Route: 048
  2. ALDACTONE [Concomitant]
     Route: 048
  3. MILK THISTLE [Concomitant]
     Route: 048
  4. LOVAZA [Concomitant]
     Route: 048
  5. VENTOLIN HFA [Concomitant]
     Dosage: 1 PUFF, PRN
     Route: 048
  6. TRUE ALOE [Concomitant]
     Route: 048
  7. VITAMIN B COMPLEX CAP [Concomitant]
     Dosage: 1 DROP, EVERY DAY
     Route: 048
  8. COQ-10 [Concomitant]
     Route: 048
  9. AMBIEN [Concomitant]
     Route: 048
  10. PRAVASTATIN [Suspect]
     Route: 065
  11. ALIVE VITAMINS [Concomitant]
     Route: 048
  12. CINNAMON [Concomitant]
     Route: 048
  13. FOLIC ACID WITH DHA [Concomitant]
     Route: 048
  14. GREEN TEA PHYTOSOME [Concomitant]
     Route: 048
  15. PERCOCET [Concomitant]
     Route: 048
  16. SPIRONOLACTONE [Concomitant]
     Route: 048
  17. CRESTOR [Suspect]
     Route: 048
  18. ALOTIN HA [Concomitant]
     Route: 048
  19. ASPIRIN [Concomitant]
     Route: 048
  20. POTASSIUM CHLORIDE [Concomitant]
     Route: 048
  21. BENICAR [Concomitant]
     Route: 048
  22. ISOSORBIDE DINITRATE [Concomitant]
     Route: 048
  23. LASIX [Concomitant]
     Route: 048
  24. XANAX [Concomitant]
     Route: 048
  25. COREG [Concomitant]
     Route: 048

REACTIONS (6)
  - SUICIDAL IDEATION [None]
  - ABASIA [None]
  - PAIN [None]
  - POOR QUALITY SLEEP [None]
  - LIMB DISCOMFORT [None]
  - PAIN IN EXTREMITY [None]
